FAERS Safety Report 19741474 (Version 3)
Quarter: 2021Q4

REPORT INFORMATION
  Report Type: Spontaneous
  Country: BR (occurrence: BR)
  Receive Date: 20210824
  Receipt Date: 20211001
  Transmission Date: 20220303
  Serious: Yes (Other)
  Sender: FDA-Public Use
  Company Number: NVSC2021BR184429

PATIENT
  Age: 80 Year
  Sex: Female

DRUGS (1)
  1. DIOVAN HCT [Suspect]
     Active Substance: HYDROCHLOROTHIAZIDE\VALSARTAN
     Indication: Product used for unknown indication
     Dosage: UNK, QD (STARTED 4 YEARS AGO, IN MORNING)
     Route: 065

REACTIONS (7)
  - Blood pressure abnormal [Not Recovered/Not Resolved]
  - Thrombosis [Unknown]
  - Nervousness [Unknown]
  - Anxiety [Unknown]
  - Visual impairment [Unknown]
  - Product quality issue [Not Recovered/Not Resolved]
  - Product packaging issue [Unknown]
